FAERS Safety Report 24010259 (Version 1)
Quarter: 2024Q2

REPORT INFORMATION
  Report Type: Spontaneous
  Country: MX (occurrence: MX)
  Receive Date: 20240625
  Receipt Date: 20240625
  Transmission Date: 20240715
  Serious: Yes (Other)
  Sender: FDA-Public Use
  Company Number: MX-PFIZER INC-202400196312

PATIENT
  Age: 8 Month
  Sex: Female
  Weight: 7.8 kg

DRUGS (1)
  1. ALPROSTADIL [Suspect]
     Active Substance: ALPROSTADIL
     Indication: Congenital pulmonary valve atresia
     Dosage: 15 MCGKG, (THROUGH PERIPHERAL VENOUS LINE)
     Route: 040

REACTIONS (4)
  - Hypotension [Recovered/Resolved]
  - Off label use [Unknown]
  - Product use issue [Unknown]
  - Drug effective for unapproved indication [Unknown]
